FAERS Safety Report 7476110-1 (Version None)
Quarter: 2011Q2

REPORT INFORMATION
  Report Type: 
  Country: None (occurrence: None)
  Receive Date: 20110512
  Receipt Date: 20110504
  Transmission Date: 20111010
  Serious: Yes (Other)
  Sender: FDA-Public Use
  Company Number: DE-PFIZER INC-2011096446

PATIENT
  Age: 61 Year
  Sex: Male
  Weight: 86 kg

DRUGS (5)
  1. PANTOPRAZOLE [Suspect]
     Dosage: 20MG DAILY
     Route: 048
  2. CLINDAMYCIN HCL [Suspect]
     Dosage: 300 MG, DAILY
     Route: 048
  3. BISOPROLOL FUMARATE [Suspect]
     Dosage: 2.5-5 MG, UNK
     Route: 048
  4. ATACAND [Suspect]
     Dosage: UNK MG, UNK
     Route: 048
  5. METOPROLOL TARTRATE [Suspect]
     Dosage: 95 MG, DAILY
     Route: 048

REACTIONS (2)
  - SENSATION OF PRESSURE [None]
  - SWOLLEN TONGUE [None]
